FAERS Safety Report 14973212 (Version 3)
Quarter: 2018Q3

REPORT INFORMATION
  Report Type: Report from Study
  Country: BR (occurrence: BR)
  Receive Date: 20180605
  Receipt Date: 20180708
  Transmission Date: 20181010
  Serious: Yes (Hospitalization, Other)
  Sender: FDA-Public Use
  Company Number: BR-BIOGEN-2018BI00587843

PATIENT
  Age: 53 Year
  Sex: Female

DRUGS (1)
  1. AVONEX [Suspect]
     Active Substance: INTERFERON BETA-1A
     Indication: MULTIPLE SCLEROSIS
     Route: 030
     Dates: start: 201302, end: 201712

REACTIONS (12)
  - Headache [Unknown]
  - Influenza [Unknown]
  - Nuclear magnetic resonance imaging abnormal [Unknown]
  - Balance disorder [Unknown]
  - Limb discomfort [Unknown]
  - Multiple sclerosis relapse [Unknown]
  - Decreased immune responsiveness [Unknown]
  - Myocardial infarction [Unknown]
  - Tachyarrhythmia [Unknown]
  - Back pain [Unknown]
  - Drug ineffective [Unknown]
  - Blindness [Not Recovered/Not Resolved]

NARRATIVE: CASE EVENT DATE: 201702
